FAERS Safety Report 7520740-5 (Version None)
Quarter: 2011Q2

REPORT INFORMATION
  Report Type: 
  Country: None (occurrence: None)
  Receive Date: 20110603
  Receipt Date: 20101103
  Transmission Date: 20111010
  Serious: Yes (Other)
  Sender: FDA-Public Use
  Company Number: US-BAYER-200921945NA

PATIENT
  Age: 35 Year
  Sex: Female
  Weight: 65.909 kg

DRUGS (6)
  1. YAZ [Suspect]
     Indication: PRODUCT USED FOR UNKNOWN INDICATION
     Route: 048
     Dates: end: 20081117
  2. CENTRUM PERFORMANCE [Concomitant]
  3. ADVIL LIQUI-GELS [Concomitant]
     Indication: PAIN
  4. MINERAL TAB [Concomitant]
  5. MIRENA [Suspect]
     Indication: CONTRACEPTION
     Dosage: CONTINUOUS
     Route: 015
     Dates: start: 20081117, end: 20090306
  6. ADVIL LIQUI-GELS [Concomitant]
     Indication: HEADACHE

REACTIONS (13)
  - PROCEDURAL PAIN [None]
  - EYE SWELLING [None]
  - MIOSIS [None]
  - EYELID PTOSIS [None]
  - EYELID RETRACTION [None]
  - MYDRIASIS [None]
  - EYE DISORDER [None]
  - OLIGOMENORRHOEA [None]
  - HORNER'S SYNDROME [None]
  - VISION BLURRED [None]
  - INTERVERTEBRAL DISC DEGENERATION [None]
  - BLINDNESS TRANSIENT [None]
  - TUNNEL VISION [None]
